FAERS Safety Report 4370697-3 (Version None)
Quarter: 2004Q2

REPORT INFORMATION
  Report Type: 
  Country: None (occurrence: None)
  Receive Date: 20040601
  Receipt Date: 20040520
  Transmission Date: 20050107
  Serious: No
  Sender: FDA-Public Use
  Company Number: 2004-116326-NL

PATIENT
  Age: 27 Year
  Sex: Male

DRUGS (3)
  1. VECURONIUM BROMIDE [Suspect]
     Indication: ANAESTHESIA
     Dosage: DF
  2. PROPOFOL [Concomitant]
  3. FENTANYL [Concomitant]

REACTIONS (4)
  - ATELECTASIS [None]
  - BRONCHIAL OBSTRUCTION [None]
  - FOREIGN BODY ASPIRATION [None]
  - VOMITING [None]
